FAERS Safety Report 7642353-7 (Version None)
Quarter: 2011Q3

REPORT INFORMATION
  Report Type: 
  Country: None (occurrence: None)
  Receive Date: 20110728
  Receipt Date: 20110708
  Transmission Date: 20111222
  Serious: No
  Sender: FDA-Public Use
  Company Number: US-BAYER-2011-060376

PATIENT
  Age: 16 Year
  Sex: Female
  Weight: 73 kg

DRUGS (1)
  1. ALEVE (CAPLET) [Suspect]
     Indication: PRODUCT USED FOR UNKNOWN INDICATION
     Dosage: 2 DF, Q4HR
     Route: 048
     Dates: start: 20110706, end: 20110707

REACTIONS (4)
  - ABDOMINAL PAIN UPPER [None]
  - CONSTIPATION [None]
  - PROCTALGIA [None]
  - NO ADVERSE EVENT [None]
